FAERS Safety Report 16776535 (Version 1)
Quarter: 2019Q3

REPORT INFORMATION
  Report Type: Report from Study
  Country: FI (occurrence: FI)
  Receive Date: 20190905
  Receipt Date: 20190905
  Transmission Date: 20191005
  Serious: Yes (Hospitalization)
  Sender: FDA-Public Use
  Company Number: FI-TAKEDA-2019TUS050673

PATIENT
  Age: 66 Year
  Sex: Female
  Weight: 82.4 kg

DRUGS (16)
  1. PANADOL FORTE [Concomitant]
     Dosage: 1 GRAM
  2. ONDANSETRON [Suspect]
     Active Substance: ONDANSETRON
     Indication: NAUSEA
     Dosage: 4 MILLIGRAM
     Route: 065
     Dates: start: 201908
  3. KALCIPOS-D [Concomitant]
     Active Substance: CALCIUM CARBONATE\CHOLECALCIFEROL
     Route: 065
  4. ROSUVASTATIN ORION [Concomitant]
     Active Substance: ROSUVASTATIN CALCIUM
     Dosage: 5 MILLIGRAM, QD
     Route: 065
  5. PRIMPERAN [Concomitant]
     Active Substance: METOCLOPRAMIDE HYDROCHLORIDE
     Dosage: 10 MILLIGRAM
  6. LENALIDOMIDE [Suspect]
     Active Substance: LENALIDOMIDE
     Indication: PLASMA CELL MYELOMA
     Dosage: 25 MILLIGRAM
     Route: 048
     Dates: start: 20190815, end: 20190901
  7. DUPHALAC [Concomitant]
     Active Substance: LACTULOSE
     Dosage: UNK
     Route: 065
  8. KLEXANE [Concomitant]
     Active Substance: ENOXAPARIN
     Dosage: UNK
  9. ACICLOVIR SANDOZ                   /00587301/ [Concomitant]
     Dosage: 400 MILLIGRAM
  10. XANOR XR [Concomitant]
     Active Substance: ALPRAZOLAM
     Dosage: 1 MILLIGRAM
  11. SELOKEN ZOC/ASA [Concomitant]
     Active Substance: ASPIRIN\METOPROLOL SUCCINATE
     Dosage: 47.5 MILLIGRAM, QD
     Route: 065
  12. PANTOPRAZOL ORION [Concomitant]
     Dosage: 40 MILLIGRAM
     Route: 065
  13. LAXOBERON [Concomitant]
     Active Substance: SODIUM PICOSULFATE
     Dosage: 2.5 MILLIGRAM
     Route: 065
  14. DEXAMETHASONE. [Concomitant]
     Active Substance: DEXAMETHASONE
     Indication: PLASMA CELL MYELOMA
     Dosage: 40.5 MILLIGRAM
     Route: 048
     Dates: start: 20190815, end: 20190901
  15. COTRIM FORTE [Concomitant]
     Active Substance: SULFAMETHOXAZOLE\TRIMETHOPRIM
     Dosage: UNK
  16. IXAZOMIB [Suspect]
     Active Substance: IXAZOMIB
     Indication: PLASMA CELL MYELOMA
     Dosage: 4 MILLIGRAM
     Route: 048
     Dates: start: 20190815

REACTIONS (3)
  - Pyrexia [Recovering/Resolving]
  - Infection [Recovering/Resolving]
  - Abdominal pain [Recovering/Resolving]

NARRATIVE: CASE EVENT DATE: 20190831
